FAERS Safety Report 14695277 (Version 1)
Quarter: 2018Q1

REPORT INFORMATION
  Report Type: Report from Study
  Country: US (occurrence: US)
  Receive Date: 20180329
  Receipt Date: 20180329
  Transmission Date: 20180509
  Serious: Yes (Hospitalization, Other)
  Sender: FDA-Public Use
  Company Number: US-ACTELION-A-US2017-152685

PATIENT
  Age: 69 Year
  Sex: Female

DRUGS (3)
  1. TRACLEER [Suspect]
     Active Substance: BOSENTAN
     Indication: PULMONARY HYPERTENSION
     Dosage: 125 MG, UNK
     Route: 048
  2. ADEMPAS [Concomitant]
     Active Substance: RIOCIGUAT
  3. ADCIRCA [Concomitant]
     Active Substance: TADALAFIL

REACTIONS (17)
  - Renal failure [Unknown]
  - Dyspnoea exertional [Unknown]
  - Condition aggravated [Unknown]
  - Hepatic function abnormal [Unknown]
  - Therapy non-responder [Unknown]
  - Oxygen saturation decreased [Unknown]
  - Lung cyst [Unknown]
  - Respiratory failure [Unknown]
  - Cough [Unknown]
  - Chest discomfort [Unknown]
  - Dyspnoea [Unknown]
  - Heart rate increased [Unknown]
  - Lung disorder [Unknown]
  - Loss of personal independence in daily activities [Unknown]
  - Hypoxia [Unknown]
  - Pneumonia [Unknown]
  - Tremor [Unknown]
